FAERS Safety Report 8299739-X (Version None)
Quarter: 2012Q2

REPORT INFORMATION
  Report Type: 
  Country: None (occurrence: None)
  Receive Date: 20120419
  Receipt Date: 20120413
  Transmission Date: 20120825
  Serious: Yes (Hospitalization, Disabling)
  Sender: FDA-Public Use
  Company Number: US-MERCK-1204USA02099

PATIENT
  Age: 55 Year
  Sex: Male

DRUGS (2)
  1. ONGLYZA [Suspect]
     Route: 065
  2. JANUMET [Suspect]
     Indication: DIABETES MELLITUS
     Route: 048
     Dates: end: 20120101

REACTIONS (2)
  - PANCREATITIS [None]
  - DISCOMFORT [None]
